FAERS Safety Report 6545427-7 (Version None)
Quarter: 2010Q1

REPORT INFORMATION
  Report Type: 
  Country: None (occurrence: None)
  Receive Date: 20100121
  Receipt Date: 20100118
  Transmission Date: 20100710
  Serious: Yes (Hospitalization)
  Sender: FDA-Public Use
  Company Number: US-RB-000959-10

PATIENT
  Age: 20 Year
  Sex: Female

DRUGS (2)
  1. SUBOXONE [Suspect]
     Route: 060
     Dates: start: 20080901
  2. FLAGYL [Suspect]
     Dosage: DOSING INFORMATION IS UNKNOWN
     Route: 065
     Dates: start: 20090601, end: 20090601

REACTIONS (2)
  - FUNGAL INFECTION [None]
  - PSYCHOTIC DISORDER [None]
